FAERS Safety Report 7968805-8 (Version None)
Quarter: 2011Q4

REPORT INFORMATION
  Report Type: 
  Country: None (occurrence: None)
  Receive Date: 20111209
  Receipt Date: 20111205
  Transmission Date: 20120403
  Serious: Yes (Death, Life-Threatening, Other)
  Sender: FDA-Public Use
  Company Number: GR-ROXANE LABORATORIES, INC.-2011-RO-01745RO

PATIENT
  Age: 5 Year
  Sex: Female

DRUGS (22)
  1. LEVETIRACETAM [Suspect]
     Indication: EPILEPSY
  2. CEFTAZIDIME [Suspect]
     Indication: STENOTROPHOMONAS INFECTION
  3. ISONIAZID [Suspect]
     Indication: TUBERCULOSIS OF CENTRAL NERVOUS SYSTEM
  4. AMPHOTERICIN B DEOXYCHOLATE [Suspect]
     Indication: CNS VENTRICULITIS
     Dosage: 5 MG
  5. CEFTAZIDIME [Suspect]
     Indication: ACINETOBACTER INFECTION
  6. LEVETIRACETAM [Suspect]
  7. PYRAZINAMIDE [Suspect]
     Indication: TUBERCULOSIS OF CENTRAL NERVOUS SYSTEM
  8. LEVOFLOXACIN [Suspect]
     Indication: TUBERCULOSIS OF CENTRAL NERVOUS SYSTEM
  9. VORICONAZOLE [Suspect]
     Indication: CNS VENTRICULITIS
  10. MEROPENEM [Suspect]
     Indication: INFLAMMATION
  11. COLISTIN [Suspect]
     Indication: ACINETOBACTER INFECTION
  12. DEXAMETHASONE TABLETS USP, 1.5 MG [Suspect]
     Indication: TUBERCULOSIS OF CENTRAL NERVOUS SYSTEM
  13. RIFAMPIN [Suspect]
     Indication: TUBERCULOSIS OF CENTRAL NERVOUS SYSTEM
  14. STREPTOMYCIN [Suspect]
     Indication: TUBERCULOSIS OF CENTRAL NERVOUS SYSTEM
  15. MEROPENEM [Suspect]
     Indication: ACINETOBACTER INFECTION
  16. AMPHOTERICIN B DEOXYCHOLATE [Suspect]
  17. PYRAZINAMIDE [Suspect]
  18. MEROPENEM [Suspect]
     Indication: STENOTROPHOMONAS INFECTION
  19. COLISTIN [Suspect]
     Indication: STENOTROPHOMONAS INFECTION
  20. DEXAMETHASONE TABLETS USP, 1.5 MG [Suspect]
  21. DEXAMETHASONE TABLETS USP, 1.5 MG [Suspect]
  22. AMPHOTERICIN B [Suspect]
     Indication: ASPERGILLOSIS

REACTIONS (8)
  - GRAND MAL CONVULSION [None]
  - CNS VENTRICULITIS [None]
  - STENOTROPHOMONAS INFECTION [None]
  - ACINETOBACTER INFECTION [None]
  - ASPERGILLOSIS [None]
  - HYDROCEPHALUS [None]
  - CENTRAL NERVOUS SYSTEM INFECTION [None]
  - CARDIAC ARREST [None]
